FAERS Safety Report 22074048 (Version 2)
Quarter: 2025Q3

REPORT INFORMATION
  Report Type: Spontaneous
  Country: US (occurrence: US)
  Receive Date: 20230308
  Receipt Date: 20250725
  Transmission Date: 20251021
  Serious: Yes (Other)
  Sender: DAIICHI
  Company Number: US-DSJP-DSU-2023-108362

PATIENT
  Age: 62 Year
  Sex: Female

DRUGS (1)
  1. ENHERTU [Suspect]
     Active Substance: FAM-TRASTUZUMAB DERUXTECAN-NXKI
     Indication: Product used for unknown indication
     Route: 065

REACTIONS (3)
  - Metastases to bone [Unknown]
  - Chest pain [Unknown]
  - Disease progression [Unknown]
